FAERS Safety Report 8295650-9 (Version None)
Quarter: 2012Q2

REPORT INFORMATION
  Report Type: 
  Country: None (occurrence: None)
  Receive Date: 20120418
  Receipt Date: 20120416
  Transmission Date: 20120825
  Serious: Yes (Hospitalization)
  Sender: FDA-Public Use
  Company Number: US-MERCK-1202USA02451

PATIENT
  Age: 68 Year
  Sex: Female

DRUGS (1)
  1. FOSAMAX [Suspect]
     Route: 048

REACTIONS (11)
  - ELECTROCARDIOGRAM ABNORMAL [None]
  - LOW TURNOVER OSTEOPATHY [None]
  - POSTOPERATIVE FEVER [None]
  - FALL [None]
  - CYST [None]
  - HYPERTENSION [None]
  - FEMUR FRACTURE [None]
  - ANAEMIA POSTOPERATIVE [None]
  - OSTEOPOROSIS [None]
  - WOUND [None]
  - HYPERLIPIDAEMIA [None]
